FAERS Safety Report 9356996 (Version 1)
Quarter: 2013Q2

REPORT INFORMATION
  Report Type: Spontaneous
  Country: RU (occurrence: RU)
  Receive Date: 20130620
  Receipt Date: 20130620
  Transmission Date: 20140414
  Serious: Yes (Other)
  Sender: FDA-Public Use
  Company Number: RU-009507513-1306RUS003935

PATIENT
  Age: 51 Year
  Sex: Male

DRUGS (1)
  1. CLARITINE [Suspect]
     Indication: HYPERSENSITIVITY
     Dosage: 1 DF, ONCE
     Route: 048
     Dates: start: 20130601, end: 20130601

REACTIONS (1)
  - Status asthmaticus [Recovered/Resolved]
